FAERS Safety Report 5101634-1 (Version None)
Quarter: 2006Q3

REPORT INFORMATION
  Report Type: 
  Country: None (occurrence: None)
  Receive Date: 20060731
  Receipt Date: 20060523
  Transmission Date: 20061208
  Serious: No
  Sender: FDA-Public Use
  Company Number: 2006PV014335

PATIENT
  Age: 60 Year
  Sex: Male
  Weight: 166.0165 kg

DRUGS (7)
  1. BYETTA [Suspect]
     Indication: DIABETES MELLITUS NON-INSULIN-DEPENDENT
     Dosage: 10 MCG; BID; SC
     Route: 058
     Dates: start: 20060516
  2. GLIPIZIDE [Concomitant]
  3. ACTO-PLUS [Concomitant]
  4. LESCOL XL [Concomitant]
  5. SOTALOL HYDROCHLORIDE [Concomitant]
  6. QUINARETIC [Concomitant]
  7. ASPIRIN [Concomitant]

REACTIONS (2)
  - THERAPEUTIC RESPONSE UNEXPECTED [None]
  - WEIGHT DECREASED [None]
